FAERS Safety Report 6745776-3 (Version None)
Quarter: 2010Q2

REPORT INFORMATION
  Report Type: 
  Country: None (occurrence: None)
  Receive Date: 20100528
  Receipt Date: 20100521
  Transmission Date: 20101027
  Serious: Yes (Death)
  Sender: FDA-Public Use
  Company Number: PHHY2009JP53242

PATIENT
  Age: 83 Year
  Sex: Female

DRUGS (3)
  1. TASIGNA [Suspect]
     Indication: CHRONIC MYELOID LEUKAEMIA
     Dosage: 400 MG, DAILY
     Route: 048
     Dates: start: 20091125, end: 20091129
  2. DIART [Concomitant]
     Dosage: 30 MG, UNK
     Route: 048
  3. HANP [Concomitant]
     Dosage: 2000 UG
     Route: 041
     Dates: start: 20091125

REACTIONS (1)
  - CARDIAC FAILURE CONGESTIVE [None]
